FAERS Safety Report 6659489-X (Version None)
Quarter: 2010Q1

REPORT INFORMATION
  Report Type: 
  Country: None (occurrence: None)
  Receive Date: 20100330
  Receipt Date: 20091218
  Transmission Date: 20100710
  Serious: Yes (Other)
  Sender: FDA-Public Use
  Company Number: US-JNJFOC-20090709057

PATIENT
  Sex: Male

DRUGS (5)
  1. LEVAQUIN [Suspect]
     Indication: BRONCHITIS
     Route: 048
     Dates: start: 20090316, end: 20090323
  2. LISINOPRIL [Concomitant]
     Route: 065
  3. PRILOSEC [Concomitant]
     Route: 065
  4. MULTI-VITAMINS [Concomitant]
     Route: 065
  5. TUSSIONEX [Concomitant]
     Indication: BRONCHITIS
     Dosage: 1 TEASPOON
     Route: 048
     Dates: start: 20090316

REACTIONS (5)
  - AGEUSIA [None]
  - ANOSMIA [None]
  - DYSGEUSIA [None]
  - PAROSMIA [None]
  - RETCHING [None]
